FAERS Safety Report 13738985 (Version 1)
Quarter: 2017Q3

REPORT INFORMATION
  Report Type: Report from Study
  Country: US (occurrence: US)
  Receive Date: 20170710
  Receipt Date: 20170710
  Transmission Date: 20171127
  Serious: No
  Sender: FDA-Public Use
  Company Number: US-SAOL THERAPEUTICS-2017SAO00765

PATIENT
  Sex: Female

DRUGS (8)
  1. DILAUDID [Suspect]
     Active Substance: HYDROMORPHONE HYDROCHLORIDE
     Dosage: 2.2110 MG, \DAY
     Route: 037
     Dates: start: 20150416
  2. BUPIVACAINE. [Suspect]
     Active Substance: BUPIVACAINE
     Dosage: 25.365 MG, \DAY
     Route: 037
     Dates: start: 20150416
  3. COMPOUNDED BACLOFEN [Suspect]
     Active Substance: BACLOFEN
     Dosage: 138.18 ?G, \DAY
     Route: 037
     Dates: start: 20150416
  4. CLONIDINE. [Suspect]
     Active Substance: CLONIDINE
     Dosage: 138.18 ?G, \DAY
     Route: 037
     Dates: start: 20150416
  5. COMPOUNDED BACLOFEN [Suspect]
     Active Substance: BACLOFEN
     Dosage: 211.37 ?G, \DAY
     Route: 037
     Dates: start: 20150529
  6. CLONIDINE. [Suspect]
     Active Substance: CLONIDINE
     Dosage: 211.37 ?G, \DAY
     Route: 037
     Dates: start: 20150416
  7. DILAUDID [Suspect]
     Active Substance: HYDROMORPHONE HYDROCHLORIDE
     Dosage: 3.382 MG, \DAY
     Route: 037
     Dates: start: 20150416
  8. BUPIVACAINE. [Suspect]
     Active Substance: BUPIVACAINE
     Dosage: 16.582 MG, \DAY
     Route: 037
     Dates: start: 20150416

REACTIONS (2)
  - Implant site scar [Not Recovered/Not Resolved]
  - Implant site pain [Not Recovered/Not Resolved]

NARRATIVE: CASE EVENT DATE: 20150529
